FAERS Safety Report 6023538-2 (Version None)
Quarter: 2008Q4

REPORT INFORMATION
  Report Type: 
  Country: None (occurrence: None)
  Receive Date: 20081230
  Receipt Date: 20081226
  Transmission Date: 20090506
  Serious: Yes (Life-Threatening, Hospitalization)
  Sender: FDA-Public Use
  Company Number: PHHY2008JP31062

PATIENT
  Age: 73 Year
  Sex: Female

DRUGS (3)
  1. SANDIMMUNE [Suspect]
     Indication: INTERSTITIAL LUNG DISEASE
     Dosage: 25 MG, BID
     Dates: start: 20081105
  2. SANDIMMUNE [Suspect]
     Dosage: 75 MG IN 30 MINUTS
     Dates: start: 20081203
  3. DIPRIVAN [Concomitant]
     Dosage: UNK

REACTIONS (5)
  - ACCIDENTAL OVERDOSE [None]
  - BLOOD PRESSURE INCREASED [None]
  - IMMUNOSUPPRESSANT DRUG LEVEL INCREASED [None]
  - TACHYCARDIA [None]
  - TREMOR [None]
